FAERS Safety Report 17111267 (Version 3)
Quarter: 2020Q2

REPORT INFORMATION
  Report Type: Spontaneous
  Country: US (occurrence: US)
  Receive Date: 20191204
  Receipt Date: 20200408
  Transmission Date: 20200713
  Serious: Yes (Life-Threatening, Hospitalization)
  Sender: FDA-Public Use
  Company Number: US-PFIZER INC-2019520678

PATIENT
  Age: 3 Day
  Sex: Male
  Weight: 2.65 kg

DRUGS (10)
  1. ACICLOVIR [Concomitant]
     Active Substance: ACYCLOVIR
     Indication: ANTIBIOTIC THERAPY
     Dosage: UNK
  2. CALCIUM [Concomitant]
     Active Substance: CALCIUM
     Indication: BLOOD CALCIUM DECREASED
     Dosage: UNK (BOLUS)
  3. FOSPHENYTOIN SODIUM. [Suspect]
     Active Substance: FOSPHENYTOIN SODIUM
     Indication: SEIZURE
     Dosage: 20 MG/KG, UNK (OVER 30MINUTES AT 37 HOURS OF LIFE)
     Route: 042
  4. MAGNESIUM [Concomitant]
     Active Substance: MAGNESIUM
     Indication: BLOOD MAGNESIUM DECREASED
     Dosage: UNK (CORRECTIVE DOSE)
  5. CALCIUM [Concomitant]
     Active Substance: CALCIUM
     Indication: ELECTROCARDIOGRAM ABNORMAL
  6. FOSPHENYTOIN SODIUM. [Suspect]
     Active Substance: FOSPHENYTOIN SODIUM
     Dosage: 2.5 MG/KG, UNK (70 HOURS OF LIFE)
     Route: 042
  7. FOSPHENYTOIN SODIUM. [Suspect]
     Active Substance: FOSPHENYTOIN SODIUM
     Dosage: 2.5 MG/KG, UNK (58 HOURS OF LIFE)
     Route: 042
  8. FOSPHENYTOIN SODIUM. [Suspect]
     Active Substance: FOSPHENYTOIN SODIUM
     Dosage: 5 MG/KG, UNK (46 HOURS OF LIFE)
     Route: 042
  9. PHENOBARBITAL. [Concomitant]
     Active Substance: PHENOBARBITAL
     Indication: SEIZURE
     Dosage: 20 MG/KG, UNK
  10. LORAZEPAM. [Concomitant]
     Active Substance: LORAZEPAM
     Indication: SEIZURE
     Dosage: 0.1 MG/KG, UNK (3 DOSES)

REACTIONS (7)
  - Bradycardia neonatal [Recovered/Resolved]
  - Circulatory collapse [Recovered/Resolved]
  - Hyperglycaemia [Recovered/Resolved]
  - Neonatal hypotension [Recovered/Resolved]
  - Urine output decreased [Recovered/Resolved]
  - Toxicity to various agents [Recovered/Resolved]
  - Calcium ionised decreased [Recovered/Resolved]
